FAERS Safety Report 7163235-3 (Version None)
Quarter: 2010Q4

REPORT INFORMATION
  Report Type: 
  Country: None (occurrence: None)
  Receive Date: 20101215
  Receipt Date: 20100318
  Transmission Date: 20110411
  Serious: Yes (Other)
  Sender: FDA-Public Use
  Company Number: CA-PFIZER INC-2010019965

PATIENT
  Age: 52 Year
  Sex: Male

DRUGS (5)
  1. LYRICA [Suspect]
     Indication: NEURALGIA
     Dosage: UNK
     Route: 048
     Dates: start: 20080801, end: 20100214
  2. MONOCOR [Concomitant]
     Indication: HYPERTENSION
     Dosage: 5 MG, 1X/DAY
     Dates: start: 20090801
  3. ADALAT CC [Concomitant]
     Indication: HYPERTENSION
     Dosage: 30 MG, 1X/DAY
     Dates: start: 20090801
  4. RAMIPRIL/HYDROCHLOROTHIAZIDE [Concomitant]
     Indication: HYPERTENSION
     Dosage: 10/25 MG, 1X/DAY
     Dates: start: 20090801
  5. TYLENOL (CAPLET) [Concomitant]
     Indication: PAIN
     Dosage: 500 MG, 2 TABLETS 4X/DAY, AS NEEDED
     Dates: start: 20090801

REACTIONS (3)
  - HALLUCINATION [None]
  - NIGHTMARE [None]
  - SLEEP APNOEA SYNDROME [None]
